FAERS Safety Report 7378164-X (Version None)
Quarter: 2011Q1

REPORT INFORMATION
  Report Type: 
  Country: None (occurrence: None)
  Receive Date: 20110328
  Receipt Date: 20110316
  Transmission Date: 20110831
  Serious: Yes (Hospitalization)
  Sender: FDA-Public Use
  Company Number: A0699216A

PATIENT
  Sex: Male
  Weight: 136.4 kg

DRUGS (1)
  1. AVANDIA [Suspect]
     Dosage: 8MG PER DAY
     Route: 048
     Dates: start: 20010731, end: 20040101

REACTIONS (3)
  - MYOCARDIAL INFARCTION [None]
  - INJURY [None]
  - PAIN [None]
